FAERS Safety Report 4983687-4 (Version None)
Quarter: 2006Q2

REPORT INFORMATION
  Report Type: 
  Country: None (occurrence: None)
  Receive Date: 20060425
  Receipt Date: 20060425
  Transmission Date: 20061013
  Serious: Yes (Life-Threatening)
  Sender: FDA-Public Use
  Company Number: None

PATIENT

DRUGS (1)
  1. FLEET PHOSPHO-SODA [Suspect]
     Dates: start: 20050302, end: 20050303

REACTIONS (8)
  - DYSGEUSIA [None]
  - HUNGER [None]
  - NAUSEA [None]
  - POST PROCEDURAL COMPLICATION [None]
  - RED BLOOD CELL COUNT DECREASED [None]
  - RENAL FAILURE [None]
  - TOOTH DISORDER [None]
  - TREMOR [None]
